FAERS Safety Report 10179709 (Version 1)
Quarter: 2014Q2

REPORT INFORMATION
  Report Type: Spontaneous
  Country: US (occurrence: None)
  Receive Date: 20140425
  Receipt Date: 20140425
  Transmission Date: 20141212
  Serious: No
  Sender: FDA-Public Use
  Company Number: AP356-00474-SPO-US

PATIENT
  Age: 46 Year
  Sex: Female
  Weight: 113.4 kg

DRUGS (7)
  1. BELVIQ [Suspect]
     Indication: WEIGHT DECREASED
     Route: 048
     Dates: start: 20140218, end: 20140220
  2. AMERYL (METRONIDAZOLE BENZOATE) [Concomitant]
  3. DIOVAN/HCTZ (VALSARTAN) [Concomitant]
  4. BIRTH CONTROL (ORAL CONTRACEPTIVE NOS) [Concomitant]
  5. FISH OIL (FISH OIL) [Concomitant]
  6. MULTIVITAMINS (MULTIVITAMINS) [Concomitant]
  7. BABY ASPIRIN (ACETYLSALIC ACID) [Concomitant]

REACTIONS (3)
  - Hunger [None]
  - Dizziness [None]
  - Fatigue [None]
